FAERS Safety Report 4930565-2 (Version None)
Quarter: 2006Q1

REPORT INFORMATION
  Report Type: 
  Country: None (occurrence: None)
  Receive Date: 20060302
  Receipt Date: 20051216
  Transmission Date: 20060701
  Serious: Yes (Hospitalization)
  Sender: FDA-Public Use
  Company Number: US-MERCK-0512USA03174

PATIENT
  Age: 64 Year
  Sex: Male
  Weight: 65 kg

DRUGS (6)
  1. VIOXX [Suspect]
     Indication: ARTHRALGIA
     Route: 048
     Dates: start: 20000101, end: 20041001
  2. VIOXX [Suspect]
     Route: 048
     Dates: start: 20000101, end: 20041001
  3. VIOXX [Suspect]
     Route: 048
     Dates: start: 20000101, end: 20041001
  4. ACETAMINOPHEN AND CODEINE [Concomitant]
     Route: 065
  5. XANAX [Concomitant]
     Route: 065
  6. SKELAXIN [Concomitant]
     Route: 065

REACTIONS (13)
  - ANGINA PECTORIS [None]
  - AORTIC ANEURYSM [None]
  - AORTIC VALVE INCOMPETENCE [None]
  - ASTHENIA [None]
  - CORONARY ARTERY DISEASE [None]
  - CORONARY ARTERY STENOSIS [None]
  - FACE INJURY [None]
  - GASTRITIS [None]
  - HAEMATEMESIS [None]
  - HYPERLIPIDAEMIA [None]
  - MITRAL VALVE INCOMPETENCE [None]
  - MYOCARDIAL INFARCTION [None]
  - ROAD TRAFFIC ACCIDENT [None]
